FAERS Safety Report 10349062 (Version 1)
Quarter: 2014Q3

REPORT INFORMATION
  Report Type: Spontaneous
  Country: IT (occurrence: IT)
  Receive Date: 20140729
  Receipt Date: 20140729
  Transmission Date: 20150326
  Serious: Yes (Other)
  Sender: FDA-Public Use
  Company Number: IT-BAXTER-2014BAX041035

PATIENT
  Sex: Female

DRUGS (11)
  1. CALCIUM GLUCONATE. [Suspect]
     Active Substance: CALCIUM GLUCONATE
     Indication: PARENTERAL NUTRITION
     Dosage: 10ML
     Route: 065
     Dates: start: 20140715
  2. ZINC SULFATE [Suspect]
     Active Substance: ZINC SULFATE\ZINC SULFATE ANHYDROUS
     Indication: PARENTERAL NUTRITION
     Dosage: 1 MG/ML
     Route: 065
     Dates: start: 20140715
  3. POTASSIUM CHLORIDE. [Suspect]
     Active Substance: POTASSIUM CHLORIDE
     Indication: PARENTERAL NUTRITION
     Dosage: 3 MEQ/ML
     Route: 065
     Dates: start: 20140715
  4. MAGNESIUM CHLORIDE. [Suspect]
     Active Substance: MAGNESIUM CHLORIDE
     Indication: PARENTERAL NUTRITION
     Dosage: 100ML
     Route: 065
     Dates: start: 20140715
  5. GLUCOSIO BAXTER S.P.A. 33% [Suspect]
     Active Substance: DEXTROSE
     Indication: PARENTERAL NUTRITION
     Route: 065
     Dates: start: 20140715
  6. ACQUA PER PREPARAZIONI INIETTABILI BAXTER [Suspect]
     Active Substance: WATER
     Indication: PARENTERAL NUTRITION
     Route: 065
     Dates: start: 20140715
  7. SODIUM LACTATE. [Suspect]
     Active Substance: SODIUM LACTATE
     Indication: PARENTERAL NUTRITION
     Dates: start: 20140715
  8. SODIO CLORURO BAXTER S.P.A. 0,9% [Suspect]
     Active Substance: SODIUM CHLORIDE
     Indication: PARENTERAL NUTRITION
     Route: 065
     Dates: start: 20140715
  9. SYNTHAMIN [Suspect]
     Active Substance: AMINO ACIDS
     Indication: PARENTERAL NUTRITION
     Route: 065
     Dates: start: 20140715
  10. SODIUM GLICERO PHOSPHATE [Suspect]
     Active Substance: SODIUM GLYCEROPHOSPHATE
     Indication: PARENTERAL NUTRITION
     Dosage: 2 MEQ/ML
     Route: 065
     Dates: start: 20140715
  11. SODIUM ACETATE. [Suspect]
     Active Substance: SODIUM ACETATE
     Indication: PARENTERAL NUTRITION
     Dosage: 3 MEQ/ML
     Route: 065
     Dates: start: 20140715

REACTIONS (1)
  - Cough [Unknown]

NARRATIVE: CASE EVENT DATE: 20140715
